FAERS Safety Report 9197766 (Version 1)
Quarter: 2013Q1

REPORT INFORMATION
  Report Type: Spontaneous
  Country: DE (occurrence: CA)
  Receive Date: 20130328
  Receipt Date: 20130328
  Transmission Date: 20140127
  Serious: Yes (Other)
  Sender: FDA-Public Use
  Company Number: 2013SP000868

PATIENT
  Age: 11 Year
  Sex: Male
  Weight: 62 kg

DRUGS (2)
  1. ALVESCO [Suspect]
     Indication: COUGH
     Route: 055
     Dates: start: 20120410, end: 20120410
  2. ALVESCO [Suspect]
     Indication: COUGH
     Route: 055
     Dates: start: 20120410, end: 20120410

REACTIONS (3)
  - Rash [Recovered/Resolved]
  - Overdose [Unknown]
  - Off label use [Unknown]
